FAERS Safety Report 20044689 (Version 1)
Quarter: 2021Q4

REPORT INFORMATION
  Report Type: Report from Study
  Country: US (occurrence: US)
  Receive Date: 20211108
  Receipt Date: 20211108
  Transmission Date: 20220303
  Serious: Yes (Other)
  Sender: FDA-Public Use
  Company Number: US-SEATTLE GENETICS-2020SGN01969

PATIENT
  Age: 62 Year
  Sex: Female
  Weight: 51 kg

DRUGS (13)
  1. TISOTUMAB VEDOTIN [Suspect]
     Active Substance: TISOTUMAB VEDOTIN
     Indication: Ovarian epithelial cancer
     Dosage: 0.9 MG/KG, QCYCLE
     Route: 042
     Dates: start: 20200330, end: 20200427
  2. TYLENOL                            /00020001/ [Concomitant]
     Dosage: 650 MG, Q4HR
     Route: 048
     Dates: start: 20200414, end: 20200417
  3. DECADRON                           /00016001/ [Concomitant]
     Indication: Hypersensitivity
     Dosage: 10 MG, PRN
     Dates: start: 20200413, end: 20200417
  4. BENADRYL                           /00000402/ [Concomitant]
     Indication: Nonspecific reaction
     Dosage: 25 MG, PRN
     Dates: start: 20200413, end: 20200417
  5. ATIVAN [Concomitant]
     Active Substance: LORAZEPAM
     Indication: Nausea
     Dosage: 0.5 MG, PRN
     Route: 048
     Dates: start: 20200413, end: 20200417
  6. ATIVAN [Concomitant]
     Active Substance: LORAZEPAM
     Indication: Vomiting
     Dosage: 25 MG, PRN
     Dates: start: 20200413, end: 20200417
  7. ATIVAN [Concomitant]
     Active Substance: LORAZEPAM
     Indication: Anxiety
  8. DEMEROL [Concomitant]
     Active Substance: MEPERIDINE HYDROCHLORIDE
  9. SOLU-MEDROL [Concomitant]
     Active Substance: METHYLPREDNISOLONE SODIUM SUCCINATE
     Indication: Nonspecific reaction
  10. ZOFRAN                             /00955301/ [Concomitant]
     Indication: Nausea
     Dosage: 8 MG, PRN
     Dates: start: 20200413, end: 20200417
  11. ZOFRAN                             /00955301/ [Concomitant]
     Indication: Vomiting
  12. COMPAZINE                          /00013302/ [Concomitant]
     Indication: Nausea
     Dosage: 10 MG, PRN
     Dates: start: 20200413, end: 20200417
  13. COMPAZINE                          /00013302/ [Concomitant]
     Indication: Vomiting

REACTIONS (2)
  - Anaemia [Recovered/Resolved]
  - Dry eye [Recovered/Resolved]

NARRATIVE: CASE EVENT DATE: 20200427
